FAERS Safety Report 24449499 (Version 3)
Quarter: 2024Q4

REPORT INFORMATION
  Report Type: Spontaneous
  Country: GB (occurrence: GB)
  Receive Date: 20241017
  Receipt Date: 20241121
  Transmission Date: 20250115
  Serious: Yes (Death, Hospitalization, Other)
  Sender: MYLAN
  Company Number: GB-MYLANLABS-2024M1093019

PATIENT
  Age: 50 Year
  Sex: Male
  Weight: 71.4 kg

DRUGS (14)
  1. CLOZARIL [Suspect]
     Active Substance: CLOZAPINE
     Indication: Schizophrenia
     Dosage: 250 MILLIGRAM, QD (OD)
     Route: 048
     Dates: start: 20100714, end: 20241008
  2. CLOZARIL [Suspect]
     Active Substance: CLOZAPINE
     Indication: Schizoaffective disorder
  3. LITHIUM [Concomitant]
     Active Substance: LITHIUM
     Indication: Schizoaffective disorder
     Dosage: 520 MILLIGRAM, QD (OD)
     Route: 065
     Dates: end: 20241015
  4. PROCYCLIDINE [Concomitant]
     Active Substance: PROCYCLIDINE
     Indication: Schizoaffective disorder
     Dosage: 5 MILLIGRAM, QD (OD)
     Route: 065
     Dates: end: 20241015
  5. SCOPOLAMINE HYDROBROMIDE [Concomitant]
     Active Substance: SCOPOLAMINE HYDROBROMIDE
     Indication: Schizoaffective disorder
     Dosage: 150 MICROGRAM, BID (BD)
     Route: 065
     Dates: end: 20241015
  6. LAMOTRIGINE [Concomitant]
     Active Substance: LAMOTRIGINE
     Indication: Epilepsy
     Dosage: 200 MILLIGRAM, BID (BD)
     Route: 065
     Dates: end: 20241015
  7. MIDAZOLAM [Concomitant]
     Active Substance: MIDAZOLAM
     Indication: Epilepsy
     Dosage: 10 MILLIGRAM, PRN
     Route: 065
     Dates: end: 20241015
  8. GLATIRAMER ACETATE [Concomitant]
     Active Substance: GLATIRAMER ACETATE
     Indication: Multiple sclerosis
     Dosage: 40 MILLIGRAM, 3XW (3 TIMES A DAY)
     Route: 065
     Dates: end: 20241015
  9. GABAPENTIN [Concomitant]
     Active Substance: GABAPENTIN
     Indication: Muscle spasticity
     Dosage: 300 MILLIGRAM, TID (TDS)
     Route: 065
     Dates: end: 20241015
  10. POLYETHYLENE GLYCOLS [Concomitant]
     Active Substance: POLYETHYLENE GLYCOLS
     Indication: Constipation
     Dosage: UNK, PRN (SACHETS)
     Route: 065
     Dates: end: 20241015
  11. DOCUSATE SODIUM [Concomitant]
     Active Substance: DOCUSATE SODIUM
     Indication: Constipation
     Dosage: 50 MILLIGRAM, QD (OD)
     Route: 065
     Dates: end: 20241015
  12. CARBOCYSTEINE [Concomitant]
     Active Substance: CARBOCYSTEINE
     Indication: Increased viscosity of bronchial secretion
     Dosage: 750 MILLIGRAM, TID (TDS, 1 SACHET)
     Route: 065
     Dates: end: 20241015
  13. OMEPRAZOLE [Concomitant]
     Active Substance: OMEPRAZOLE
     Indication: Gastrooesophageal reflux disease
     Dosage: 20 MILLIGRAM, QD (OD)
     Route: 065
     Dates: end: 20241015
  14. CLARITHROMYCIN [Concomitant]
     Active Substance: CLARITHROMYCIN
     Indication: Infection
     Dosage: 500 MILLIGRAM
     Route: 065
     Dates: end: 20241015

REACTIONS (7)
  - Death [Fatal]
  - Oxygen saturation decreased [Unknown]
  - Lower respiratory tract infection [Unknown]
  - Pneumonia [Unknown]
  - Ear infection [Unknown]
  - Product dose omission issue [Unknown]
  - Off label use [Unknown]

NARRATIVE: CASE EVENT DATE: 20100714
